FAERS Safety Report 9606069 (Version 1)
Quarter: 2013Q4

REPORT INFORMATION
  Report Type: Spontaneous
  Country: US (occurrence: US)
  Receive Date: 20131008
  Receipt Date: 20131008
  Transmission Date: 20140711
  Serious: No
  Sender: FDA-Public Use
  Company Number: US-AMGEN-USASP2013039021

PATIENT
  Age: 76 Year
  Sex: Female

DRUGS (6)
  1. PROLIA [Suspect]
     Indication: OSTEOPOROSIS POSTMENOPAUSAL
     Dosage: UNK
     Dates: start: 20130530
  2. LEVOTHYROXINE [Concomitant]
  3. TOPROL [Concomitant]
  4. BAYER ASPIRIN [Concomitant]
  5. CENTRUM SILVER                     /02363801/ [Concomitant]
  6. FISH OIL [Concomitant]

REACTIONS (5)
  - Hyperhidrosis [Recovering/Resolving]
  - Hot flush [Recovering/Resolving]
  - Feeling hot [Recovering/Resolving]
  - Fatigue [Recovering/Resolving]
  - Asthenia [Recovering/Resolving]
